FAERS Safety Report 20068447 (Version 1)
Quarter: 2021Q4

REPORT INFORMATION
  Report Type: Spontaneous
  Country: CN (occurrence: CN)
  Receive Date: 20211115
  Receipt Date: 20211115
  Transmission Date: 20220303
  Serious: Yes (Other)
  Sender: FDA-Public Use
  Company Number: CN-SA-SAC20211112000299

PATIENT
  Age: 32 Year
  Sex: Female
  Weight: 47 kg

DRUGS (4)
  1. FLUOROURACIL [Suspect]
     Active Substance: FLUOROURACIL
     Indication: Colon cancer
     Dosage: 3.25 G, TOTAL
     Route: 041
     Dates: start: 20210907, end: 20210907
  2. OXALIPLATIN [Suspect]
     Active Substance: OXALIPLATIN
     Indication: Colon cancer
     Dosage: 110 MG, TOTAL, INJECTION
     Route: 041
     Dates: start: 20210907, end: 20210907
  3. SODIUM CHLORIDE [Concomitant]
     Active Substance: SODIUM CHLORIDE
     Dosage: 100 ML, TOTAL
     Route: 041
     Dates: start: 20210907, end: 20210907
  4. DEXTROSE [Concomitant]
     Active Substance: DEXTROSE
     Dosage: 100 ML, TOTAL
     Route: 041
     Dates: start: 20210907, end: 20210907

REACTIONS (2)
  - White blood cell count decreased [Recovering/Resolving]
  - Neutrophil count decreased [Recovering/Resolving]

NARRATIVE: CASE EVENT DATE: 20210922
